FAERS Safety Report 19264804 (Version 7)
Quarter: 2024Q2

REPORT INFORMATION
  Report Type: Spontaneous
  Country: CZ (occurrence: CZ)
  Receive Date: 20210517
  Receipt Date: 20240515
  Transmission Date: 20240715
  Serious: Yes (Other)
  Sender: FDA-Public Use
  Company Number: CZ-002147023-NVSC2021CZ088758

PATIENT
  Age: 48 Year
  Sex: Female

DRUGS (20)
  1. IBUPROFEN [Suspect]
     Active Substance: IBUPROFEN
     Indication: Migraine prophylaxis
     Dosage: 400 MILLIGRAM,, 8-10 DAYS IN MONTH
     Route: 065
  2. IBUPROFEN [Suspect]
     Active Substance: IBUPROFEN
     Indication: Migraine
     Dosage: 800 MILLIGRAM, ONCE A DAY (400 MG, BID (8 TO 10 DAYS IN MONTH) )
     Route: 065
  3. IBUPROFEN [Suspect]
     Active Substance: IBUPROFEN
     Indication: Headache
  4. PREGABALIN [Suspect]
     Active Substance: PREGABALIN
     Indication: Migraine
     Dosage: 300 MILLIGRAM, ONCE A DAY
     Route: 048
  5. PREGABALIN [Suspect]
     Active Substance: PREGABALIN
     Indication: Migraine without aura
     Dosage: 100 MILLIGRAM, ONCE A DAY (100 MILLIGRAM DAILY)
     Route: 048
  6. SUMATRIPTAN [Suspect]
     Active Substance: SUMATRIPTAN
     Indication: Migraine prophylaxis
     Dosage: 50 MILLIGRAM,OVER 22 DAYS IN MONTH (50 MILLIGRAM DAILY)
     Route: 048
  7. SUMATRIPTAN [Suspect]
     Active Substance: SUMATRIPTAN
     Indication: Migraine
     Dosage: 100 MILLIGRAM, ONCE A DAY (100 MILLIGRAM DAILY)
     Route: 048
  8. AJOVY [Suspect]
     Active Substance: FREMANEZUMAB-VFRM
     Indication: Migraine
     Dosage: 225 MILLIGRAM (28 DAY),8.0357 MILLIGRAM DAILY
     Route: 058
  9. AJOVY [Suspect]
     Active Substance: FREMANEZUMAB-VFRM
     Dosage: 100 MILLIGRAM, ONCE A DAY
     Route: 048
  10. TOPIRAMATE [Suspect]
     Active Substance: TOPIRAMATE
     Indication: Migraine prophylaxis
     Dosage: 75 MILLIGRAM, ONCE A DAY (75 MILLIGRAM DAILY)
     Route: 048
  11. TOPIRAMATE [Suspect]
     Active Substance: TOPIRAMATE
     Indication: Migraine
     Dosage: 100 MILLIGRAM, ONCE A DAY (100 MILLIGRAM DAILY)
     Route: 048
  12. TOPIRAMATE [Suspect]
     Active Substance: TOPIRAMATE
     Dosage: 25 MILLIGRAM, ONCE A DAY (AT A TOTAL DAILY DOSE OF 75 MG FOR 2 MONTHS)
     Route: 048
  13. TOPAMAX [Suspect]
     Active Substance: TOPIRAMATE
     Indication: Migraine without aura
     Dosage: 25 MILLIGRAM, ONCE A DAY (AT A TOTAL DAILY DOSE OF 75 MG FOR 2 MONTHS)
     Route: 048
  14. VENLAFAXINE [Suspect]
     Active Substance: VENLAFAXINE HYDROCHLORIDE
     Indication: Migraine
     Dosage: 150 MILLIGRAM, ONCE A DAY, 150 MILLIGRAM DAILY
     Route: 048
  15. VENLAFAXINE [Suspect]
     Active Substance: VENLAFAXINE HYDROCHLORIDE
     Indication: Migraine without aura
     Dosage: 100 MILLIGRAM, ONCE A DAY, 100 MILLIGRAM DAILY
     Route: 048
  16. VALPROATE [Suspect]
     Active Substance: VALPROIC ACID
     Indication: Migraine
     Dosage: 800 MILLIGRAM, ONCE A DAY, (800 MILLIGRAM DAILY)
     Route: 048
  17. VALPROATE [Suspect]
     Active Substance: VALPROIC ACID
     Indication: Migraine without aura
     Dosage: 100 MILLIGRAM, ONCE A DAY, 100 MILLIGRAM DAILY
     Route: 048
  18. CINNARIZINE HCL [Concomitant]
     Indication: Rash
     Dosage: 75 MILLIGRAM, ONCE A DAY
     Route: 065
  19. CINNARIZINE HCL [Concomitant]
     Indication: Migraine without aura
  20. IBUPROFEN [Suspect]
     Active Substance: IBUPROFEN
     Indication: Headache
     Dosage: 400 MILLIGRAM (2X 1, TAKEN 8 TO 10 DAYS A MONTH)
     Route: 065

REACTIONS (11)
  - Fatigue [Recovered/Resolved]
  - Medication overuse headache [Recovered/Resolved]
  - Acute respiratory distress syndrome [Unknown]
  - Migraine without aura [Recovered/Resolved]
  - Injection site mass [Recovered/Resolved]
  - Dermatitis allergic [Unknown]
  - Drug intolerance [Unknown]
  - Product use issue [Unknown]
  - Drug ineffective [Unknown]
  - Therapeutic product effect incomplete [Unknown]
  - Product use in unapproved indication [Unknown]
